FAERS Safety Report 4313854-4 (Version None)
Quarter: 2004Q1

REPORT INFORMATION
  Report Type: 
  Country: None (occurrence: None)
  Receive Date: 20040304
  Receipt Date: 20031219
  Transmission Date: 20041129
  Serious: Yes (Hospitalization)
  Sender: FDA-Public Use
  Company Number: 2003113469

PATIENT
  Sex: Female

DRUGS (4)
  1. GEODON [Suspect]
     Indication: BORDERLINE PERSONALITY DISORDER
     Dosage: 160 MG (BID), ORAL
     Route: 048
     Dates: start: 20030320, end: 20030814
  2. GEODON [Suspect]
     Indication: THINKING ABNORMAL
     Dosage: 160 MG (BID), ORAL
     Route: 048
     Dates: start: 20030320, end: 20030814
  3. PAROXETINE HCL [Concomitant]
  4. TOPIRMATE [Concomitant]

REACTIONS (3)
  - ANXIETY [None]
  - INTENTIONAL OVERDOSE [None]
  - SEDATION [None]
